FAERS Safety Report 4932995-1 (Version None)
Quarter: 2006Q1

REPORT INFORMATION
  Report Type: 
  Country: None (occurrence: None)
  Receive Date: 20060302
  Receipt Date: 20060302
  Transmission Date: 20060701
  Serious: Yes (Other)
  Sender: FDA-Public Use
  Company Number: None

PATIENT
  Age: 62 Year
  Sex: Female
  Weight: 78.0187 kg

DRUGS (1)
  1. MINOXIDIL [Suspect]
     Indication: HYPERTENSION
     Dosage: 2.5 MG X 2 AM + PM
     Dates: start: 20051209, end: 20060101

REACTIONS (2)
  - HAIR GROWTH ABNORMAL [None]
  - LIBIDO INCREASED [None]
